FAERS Safety Report 17829072 (Version 1)
Quarter: 2020Q2

REPORT INFORMATION
  Report Type: Spontaneous
  Country: US (occurrence: US)
  Receive Date: 20200527
  Receipt Date: 20200527
  Transmission Date: 20200714
  Serious: No
  Sender: FDA-Public Use
  Company Number: US-009507513-2005USA002325

PATIENT
  Age: 35 Year
  Sex: Male

DRUGS (2)
  1. SINGULAIR [Suspect]
     Active Substance: MONTELUKAST SODIUM
     Indication: ASTHMA
     Dosage: 10 MG ONCE A DAY
     Route: 048
     Dates: start: 20200506
  2. SINGULAIR [Suspect]
     Active Substance: MONTELUKAST SODIUM
     Indication: MULTIPLE ALLERGIES

REACTIONS (1)
  - Abnormal dreams [Unknown]

NARRATIVE: CASE EVENT DATE: 20200506
